FAERS Safety Report 25130602 (Version 4)
Quarter: 2025Q2

REPORT INFORMATION
  Report Type: Spontaneous
  Country: JP (occurrence: JP)
  Receive Date: 20250327
  Receipt Date: 20250625
  Transmission Date: 20250717
  Serious: Yes (Other)
  Sender: BRISTOL-MYERS SQUIBB COMPANY
  Company Number: JP-ONO-2025JP005262

PATIENT
  Age: 63 Year
  Sex: Male

DRUGS (4)
  1. OPDIVO [Suspect]
     Active Substance: NIVOLUMAB
     Indication: Oesophageal carcinoma
     Route: 041
  2. FLUOROURACIL [Concomitant]
     Active Substance: FLUOROURACIL
     Indication: Oesophageal carcinoma
  3. CISPLATIN [Concomitant]
     Active Substance: CISPLATIN
     Indication: Oesophageal carcinoma
  4. CISPLATIN [Concomitant]
     Active Substance: CISPLATIN

REACTIONS (8)
  - Myocardial infarction [Unknown]
  - Cardiac failure [Recovering/Resolving]
  - Atrial thrombosis [Unknown]
  - Atrial fibrillation [Unknown]
  - Renal impairment [Unknown]
  - Immune-mediated lung disease [Unknown]
  - Faeces discoloured [Unknown]
  - Anaemia [Unknown]
